FAERS Safety Report 8860651 (Version 1)
Quarter: 2012Q4

REPORT INFORMATION
  Report Type: Report from Study
  Country: US (occurrence: US)
  Receive Date: 20121025
  Receipt Date: 20121025
  Transmission Date: 20130627
  Serious: No
  Sender: FDA-Public Use
  Company Number: US-ABBOTT-12P-163-0906529-00

PATIENT
  Sex: Female

DRUGS (9)
  1. LUPRON DEPOT 3.75 MG [Suspect]
     Indication: UTERINE LEIOMYOMA
     Route: 030
     Dates: start: 201201
  2. AVAPRO [Concomitant]
     Indication: PRODUCT USED FOR UNKNOWN INDICATION
  3. ASPIRIN [Concomitant]
     Indication: PRODUCT USED FOR UNKNOWN INDICATION
  4. OMEGA 3 FISH OIL [Concomitant]
     Indication: PRODUCT USED FOR UNKNOWN INDICATION
  5. COQ10 [Concomitant]
     Indication: PRODUCT USED FOR UNKNOWN INDICATION
  6. MULTIPLE VITAMINS [Concomitant]
     Indication: PRODUCT USED FOR UNKNOWN INDICATION
  7. CALCIUM [Concomitant]
     Indication: PRODUCT USED FOR UNKNOWN INDICATION
  8. PROBIOTICS [Concomitant]
     Indication: PRODUCT USED FOR UNKNOWN INDICATION
  9. IRON [Concomitant]
     Indication: PRODUCT USED FOR UNKNOWN INDICATION

REACTIONS (1)
  - Neck pain [Not Recovered/Not Resolved]
